FAERS Safety Report 13113418 (Version 1)
Quarter: 2017Q1

REPORT INFORMATION
  Report Type: Spontaneous
  Country: PE (occurrence: PE)
  Receive Date: 20170113
  Receipt Date: 20170113
  Transmission Date: 20170428
  Serious: Yes (Other)
  Sender: FDA-Public Use
  Company Number: PE-PFIZER INC-2016444519

PATIENT
  Age: 70 Year
  Sex: Female

DRUGS (5)
  1. ZELDOX [Suspect]
     Active Substance: ZIPRASIDONE
     Indication: SCHIZOPHRENIA
     Dosage: UNK
     Dates: start: 2007
  2. RIVOTRIL [Suspect]
     Active Substance: CLONAZEPAM
     Dosage: 0.5 MG, 1/2 TABLET PER DAY
  3. LITHIUM CARBONATE. [Suspect]
     Active Substance: LITHIUM CARBONATE
     Dosage: 0.5 DF, UNK
  4. LITHIUM CARBONATE. [Suspect]
     Active Substance: LITHIUM CARBONATE
     Dosage: 1 DF, UNK
     Dates: start: 20160919
  5. ZELDOX [Suspect]
     Active Substance: ZIPRASIDONE
     Dosage: 40 MG, 1X/DAY
     Dates: start: 201605

REACTIONS (2)
  - Tremor [Not Recovered/Not Resolved]
  - Renal failure [Unknown]
